FAERS Safety Report 4560807-7 (Version None)
Quarter: 2005Q1

REPORT INFORMATION
  Report Type: 
  Country: None (occurrence: None)
  Receive Date: 20050121
  Receipt Date: 20041201
  Transmission Date: 20050727
  Serious: No
  Sender: FDA-Public Use
  Company Number: 9400

PATIENT
  Age: 48 Year
  Sex: Male

DRUGS (2)
  1. ATRACURIUM BESYLATE [Suspect]
     Indication: INTUBATION
     Dosage: 35 MG ONCE IV
     Route: 042
  2. ATRACURIUM BESYLATE [Suspect]
     Indication: SURGERY
     Dosage: 35 MG ONCE IV
     Route: 042

REACTIONS (1)
  - DRUG INEFFECTIVE [None]
